FAERS Safety Report 13565093 (Version 1)
Quarter: 2017Q2

REPORT INFORMATION
  Report Type: Spontaneous
  Country: US (occurrence: US)
  Receive Date: 20170519
  Receipt Date: 20170519
  Transmission Date: 20170830
  Serious: No
  Sender: FDA-Public Use
  Company Number: US-BAUSCH-BL-2016-028352

PATIENT
  Sex: Female
  Weight: 54.48 kg

DRUGS (2)
  1. IPRATROPIUM BROMIDE NASAL SOLUTION 0.06% [Suspect]
     Active Substance: IPRATROPIUM BROMIDE
     Indication: ASTHMA
     Dosage: 1 SPRAY IN EACH NOSTRIL DAILY 3 TIMES PER WEEK
     Route: 045
     Dates: start: 201611
  2. LANSOPRAZOLE. [Concomitant]
     Active Substance: LANSOPRAZOLE
     Indication: PRODUCT USED FOR UNKNOWN INDICATION
     Dosage: IN THE MORNING
     Route: 048

REACTIONS (3)
  - Sensitivity of teeth [Recovered/Resolved]
  - Dysgeusia [Recovered/Resolved]
  - Dizziness [Recovered/Resolved]

NARRATIVE: CASE EVENT DATE: 2016
